FAERS Safety Report 7301516-0 (Version None)
Quarter: 2011Q1

REPORT INFORMATION
  Report Type: 
  Country: None (occurrence: None)
  Receive Date: 20110218
  Receipt Date: 20100920
  Transmission Date: 20110831
  Serious: Yes (Other)
  Sender: FDA-Public Use
  Company Number: US-BRISTOL-MYERS SQUIBB COMPANY-15296544

PATIENT
  Age: 42 Year
  Sex: Female

DRUGS (3)
  1. KENALOG [Suspect]
     Route: 058
     Dates: start: 20091223
  2. MULTI-VITAMIN [Concomitant]
  3. ADDERALL 10 [Concomitant]

REACTIONS (3)
  - DEPRESSION [None]
  - INJECTION SITE ATROPHY [None]
  - MASS [None]
